FAERS Safety Report 10661845 (Version 1)
Quarter: 2014Q4

REPORT INFORMATION
  Report Type: Spontaneous
  Country: TW (occurrence: TW)
  Receive Date: 20141218
  Receipt Date: 20141218
  Transmission Date: 20150529
  Serious: Yes (Hospitalization, Other)
  Sender: FDA-Public Use
  Company Number: TW-SA-2014SA172044

PATIENT
  Age: 6 Year
  Sex: Male
  Weight: 23.4 kg

DRUGS (1)
  1. MYOZYME [Suspect]
     Active Substance: ALGLUCOSIDASE ALFA
     Indication: GLYCOGEN STORAGE DISEASE TYPE II
     Route: 042

REACTIONS (15)
  - Cough [Recovered/Resolved]
  - Pneumonia [Recovered/Resolved]
  - Pyrexia [Recovered/Resolved]
  - Decreased appetite [Recovered/Resolved]
  - Blood pressure increased [Unknown]
  - Pneumococcal bacteraemia [Unknown]
  - Productive cough [Recovered/Resolved]
  - Lung infiltration [Recovered/Resolved]
  - Leukocytosis [Recovered/Resolved]
  - C-reactive protein increased [Recovered/Resolved]
  - Oropharyngeal pain [Recovered/Resolved]
  - Somnolence [Recovered/Resolved]
  - Decreased activity [Recovered/Resolved]
  - Dyspnoea [Recovered/Resolved]
  - Rhonchi [Recovered/Resolved]

NARRATIVE: CASE EVENT DATE: 201412
